FAERS Safety Report 22518662 (Version 4)
Quarter: 2023Q2

REPORT INFORMATION
  Report Type: Spontaneous
  Country: CN (occurrence: CN)
  Receive Date: 20230605
  Receipt Date: 20230614
  Transmission Date: 20230721
  Serious: Yes (Death)
  Sender: FDA-Public Use
  Company Number: CN-BoehringerIngelheim-2023-BI-240830

PATIENT
  Age: 88 Year
  Sex: Male

DRUGS (1)
  1. ALTEPLASE [Suspect]
     Active Substance: ALTEPLASE
     Indication: Cerebrovascular accident
     Route: 065
     Dates: start: 20220406, end: 20220406

REACTIONS (3)
  - Myocardial infarction [Fatal]
  - Cerebral infarction [Fatal]
  - Off label use [Unknown]

NARRATIVE: CASE EVENT DATE: 20220406
